FAERS Safety Report 23263451 (Version 1)
Quarter: 2023Q4

REPORT INFORMATION
  Report Type: Spontaneous
  Country: US (occurrence: None)
  Receive Date: 20231204
  Receipt Date: 20231204
  Transmission Date: 20240110
  Serious: Yes (Life-Threatening, Disabling)
  Sender: FDA-Public Use
  Company Number: None

PATIENT
  Sex: 0

DRUGS (1)
  1. LINZESS [Suspect]
     Active Substance: LINACLOTIDE
     Indication: Product used for unknown indication

REACTIONS (4)
  - Back pain [None]
  - Abdominal distension [None]
  - Constipation [None]
  - Somnolence [None]

NARRATIVE: CASE EVENT DATE: 20231202
